FAERS Safety Report 8812153 (Version 1)
Quarter: 2012Q4

REPORT INFORMATION
  Report Type: 
  Country: US (occurrence: US)
  Receive Date: 20120927
  Receipt Date: 20120927
  Transmission Date: 20130627
  Serious: Yes (Death, Other)
  Sender: FDA-Public Use
  Company Number: US-ROCHE-1129279

PATIENT
  Sex: Female

DRUGS (7)
  1. AVASTIN [Suspect]
     Indication: BREAST CANCER FEMALE
     Route: 065
     Dates: start: 20060707
  2. AVASTIN [Suspect]
     Route: 065
     Dates: start: 20060804, end: 20061006
  3. ARIMIDEX [Concomitant]
  4. FASLODEX [Concomitant]
  5. ZOMETA [Concomitant]
  6. TAXOL [Concomitant]
  7. ABRAXANE [Concomitant]
     Route: 065
     Dates: start: 20060804

REACTIONS (5)
  - Death [Fatal]
  - Staphylococcal infection [Unknown]
  - Depression [Unknown]
  - Disease progression [Unknown]
  - Fatigue [Unknown]
